FAERS Safety Report 9843193 (Version 1)
Quarter: 2014Q1

REPORT INFORMATION
  Report Type: Spontaneous
  Country: US (occurrence: US)
  Receive Date: 20140124
  Receipt Date: 20140124
  Transmission Date: 20141002
  Serious: No
  Sender: FDA-Public Use
  Company Number: US-GILEAD-2014-0092886

PATIENT
  Age: 60 Year
  Sex: Female

DRUGS (1)
  1. SOVALDI [Suspect]
     Indication: HEPATITIS C
     Dosage: 400 MG, UNK
     Route: 065
     Dates: start: 20140114

REACTIONS (9)
  - Balance disorder [Unknown]
  - Sensation of heaviness [Unknown]
  - Dysphonia [Unknown]
  - Emotional disorder [Unknown]
  - Cardiac flutter [Unknown]
  - Stress [Unknown]
  - Headache [Unknown]
  - Dyspnoea [Unknown]
  - Fatigue [Unknown]
